FAERS Safety Report 8552258 (Version 2)
Quarter: 2013Q2

REPORT INFORMATION
  Report Type: Spontaneous
  Country: US (occurrence: None)
  Receive Date: 20120327
  Receipt Date: 20120709
  Transmission Date: 20140414
  Serious: Yes (Other)
  Sender: FDA-Public Use
  Company Number: PHHY2010US12108

PATIENT
  Age: 58 Year
  Sex: Female
  Weight: 89.7 kg

DRUGS (6)
  1. GLEEVEC [Suspect]
     Indication: CHRONIC MYELOID LEUKAEMIA
     Dosage: 400 MG DAILY, ORAL, 300 MG DAILY, ORAL
     Route: 048
     Dates: start: 20090307, end: 20110210
  2. SPRYCEL [Concomitant]
  3. ASA (ACETYLSALICYLIC ACID) [Concomitant]
  4. LEXAPRO [Concomitant]
  5. AMBIEN [Concomitant]
  6. PANOBINOSTAT [Concomitant]

REACTIONS (12)
  - VOMITING [None]
  - DIARRHOEA [None]
  - PAIN [None]
  - DEPRESSION [None]
  - FATIGUE [None]
  - HEADACHE [None]
  - ARTHRALGIA [None]
  - NAUSEA [None]
  - Cough [None]
  - Muscle spasms [None]
  - Arthralgia [None]
  - Ulcer [None]
